FAERS Safety Report 5946494-1 (Version None)
Quarter: 2008Q4

REPORT INFORMATION
  Report Type: 
  Country: None (occurrence: None)
  Receive Date: 20081110
  Receipt Date: 20081031
  Transmission Date: 20090506
  Serious: Yes (Hospitalization)
  Sender: FDA-Public Use
  Company Number: B0531880A

PATIENT
  Age: 54 Year
  Sex: Female
  Weight: 70.5 kg

DRUGS (4)
  1. LAPATINIB [Suspect]
     Indication: BREAST CANCER
     Dosage: 100MG PER DAY
     Route: 048
     Dates: start: 20080730
  2. TRASTUZUMAB [Suspect]
     Indication: BREAST CANCER
     Route: 042
     Dates: start: 20080730
  3. PACLITAXEL [Suspect]
     Indication: BREAST CANCER
     Dosage: 80MGM2 WEEKLY
     Route: 042
     Dates: start: 20080730
  4. OXAZEPAM [Concomitant]
     Dosage: 10UG TWICE PER DAY
     Route: 048
     Dates: start: 20060101

REACTIONS (3)
  - ADVERSE DRUG REACTION [None]
  - CHILLS [None]
  - PYREXIA [None]
